FAERS Safety Report 5243110-1 (Version None)
Quarter: 2007Q1

REPORT INFORMATION
  Report Type: 
  Country: None (occurrence: None)
  Receive Date: 20070221
  Receipt Date: 20070209
  Transmission Date: 20070707
  Serious: Yes (Hospitalization, Other)
  Sender: FDA-Public Use
  Company Number: FR-PFIZER INC-2006152943

PATIENT
  Sex: Female
  Weight: 55 kg

DRUGS (3)
  1. LYRICA [Suspect]
     Indication: NEURALGIA
     Route: 048
     Dates: start: 20061122, end: 20061204
  2. LAROXYL [Interacting]
     Indication: NEURALGIA
     Dosage: DAILY DOSE:10MG
     Route: 048
     Dates: start: 20061122, end: 20061204
  3. TRAMADOL HCL [Interacting]
     Indication: NEURALGIA
     Dosage: DAILY DOSE:200MG
     Route: 048
     Dates: start: 20061122, end: 20061204

REACTIONS (3)
  - DRUG INTERACTION [None]
  - EPILEPSY [None]
  - JOINT DISLOCATION [None]
